FAERS Safety Report 9996451 (Version 2)
Quarter: 2014Q1

REPORT INFORMATION
  Report Type: Spontaneous
  Country: US (occurrence: US)
  Receive Date: 20140311
  Receipt Date: 20140319
  Transmission Date: 20141002
  Serious: Yes (Other)
  Sender: FDA-Public Use
  Company Number: US-B.I. PHARMACEUTICALS,INC./RIDGEFIELD-2014-BI-10101BP

PATIENT
  Age: 66 Year
  Sex: Female

DRUGS (47)
  1. ATROVENT [Suspect]
     Indication: PRODUCT USED FOR UNKNOWN INDICATION
     Route: 065
  2. ADVAIR MULTI DOSE POWDER INHALER (FLUTICASONE + SALMETEROL) [Suspect]
     Indication: RESPIRATORY DISORDER
     Dosage: FORMULATION: POWDER INHALER, STRENGTH: 500/50MCG,
     Route: 065
  3. ADVAIR MULTI DOSE POWDER INHALER (FLUTICASONE + SALMETEROL) [Suspect]
     Indication: CARDIOVASCULAR DISORDER
  4. FLONASE AQUEOUS SPRAY [Suspect]
     Indication: RESPIRATORY DISORDER
     Dosage: FORMULATION: AQUEOUS SPRAY,
     Route: 065
  5. RYTHMOL SR CAPSULE [Suspect]
     Indication: RESPIRATORY DISORDER
     Dosage: 675 MG
     Route: 065
  6. MONTELUKAST SODIUM [Suspect]
     Indication: ASTHMA
     Route: 065
  7. PHYTOMENADIONE [Suspect]
     Indication: PRODUCT USED FOR UNKNOWN INDICATION
     Route: 065
  8. ALLERGY MEDICATION INJECTION [Suspect]
     Indication: PRODUCT USED FOR UNKNOWN INDICATION
     Route: 065
  9. SODIUM RABEPRAZOLE [Concomitant]
     Route: 065
  10. SALBUTAMOL SULPHATE [Concomitant]
     Route: 065
  11. SPIRONOLACTONE [Concomitant]
     Route: 065
  12. DIPHENHYDRAMINE HCL [Concomitant]
     Route: 065
  13. DICYCLOMINE HYDROCHLORIDE [Concomitant]
     Route: 065
  14. CITRACAL 1500 + D [Concomitant]
     Route: 065
  15. WARFARIN SODIUM [Concomitant]
     Route: 065
  16. PANCREATIN [Concomitant]
     Route: 065
  17. DIAZEPAM [Concomitant]
     Route: 065
  18. ASCORBIC ACID [Concomitant]
     Route: 065
  19. VITAMIN E [Concomitant]
     Route: 065
  20. FIORICET WITH CODEINE [Concomitant]
     Route: 065
  21. FOLIC ACID [Concomitant]
     Route: 065
  22. FUROSEMIDE [Concomitant]
     Route: 065
  23. GUAIPHENESIN [Concomitant]
     Route: 065
  24. NORCO [Concomitant]
     Route: 065
  25. ACIPHEX [Concomitant]
     Route: 065
  26. CITRACAL +D [Concomitant]
     Route: 065
  27. COUMADIN [Concomitant]
     Route: 065
  28. CREON [Concomitant]
     Route: 065
  29. LASIX [Concomitant]
     Route: 065
  30. MUCINEX [Concomitant]
     Route: 065
  31. POTASSIUM CHLORIDE [Concomitant]
     Route: 065
  32. PRAVACHOL [Concomitant]
     Route: 065
  33. QNASL [Concomitant]
     Route: 065
  34. QVAR [Concomitant]
     Route: 065
  35. RECLAST [Concomitant]
     Route: 065
  36. SIMETHICONE [Concomitant]
     Route: 065
  37. SLOW FE [Concomitant]
     Route: 065
  38. SYNTHROID [Concomitant]
     Route: 065
  39. TOPROL XL [Concomitant]
     Route: 065
  40. TYLENOL WITH CODEINE [Concomitant]
     Route: 065
  41. VALACYCLOVIR [Concomitant]
     Route: 065
  42. VANCOMYCIN [Concomitant]
     Route: 065
  43. VITAMIN B12 [Concomitant]
     Route: 065
  44. WOMEN^S MULTIVITAMIN AND MINERAL [Concomitant]
     Route: 065
  45. ZOFRAN [Concomitant]
     Route: 065
  46. ZOLOFT [Concomitant]
     Route: 065
  47. IVIG [Concomitant]
     Route: 065

REACTIONS (15)
  - Arrhythmia [Unknown]
  - Road traffic accident [Unknown]
  - Pulmonary mass [Unknown]
  - Bronchitis [Unknown]
  - Asthma [Unknown]
  - Herpes zoster [Unknown]
  - Respiratory fume inhalation disorder [Unknown]
  - Drug hypersensitivity [Unknown]
  - Cough [Unknown]
  - Eye pruritus [Unknown]
  - Throat irritation [Unknown]
  - Rhinorrhoea [Unknown]
  - Limb injury [Unknown]
  - Hypersensitivity [Unknown]
  - Oxygen saturation decreased [Unknown]
